FAERS Safety Report 10740840 (Version 3)
Quarter: 2015Q1

REPORT INFORMATION
  Report Type: Spontaneous
  Country: US (occurrence: US)
  Receive Date: 20150127
  Receipt Date: 20150226
  Transmission Date: 20150721
  Serious: Yes (Hospitalization)
  Sender: FDA-Public Use
  Company Number: US-PFIZER INC-2015029561

PATIENT
  Age: 79 Year
  Sex: Female

DRUGS (3)
  1. REVATIO [Suspect]
     Active Substance: SILDENAFIL CITRATE
     Dosage: 20 MG, 3X/DAY
  2. LATANOPROST 0.005 % [Concomitant]
     Indication: EYE DISORDER
     Dosage: 1 DF AT BED TIME
  3. DORZOLAMIDE TIMOLOLO [Concomitant]
     Indication: EYE DISORDER
     Dosage: UNK, 2X/DAY

REACTIONS (3)
  - Hypotension [Recovered/Resolved]
  - Nasopharyngitis [Unknown]
  - Headache [Unknown]
